FAERS Safety Report 18617872 (Version 1)
Quarter: 2020Q4

REPORT INFORMATION
  Report Type: Spontaneous
  Country: US (occurrence: US)
  Receive Date: 20201215
  Receipt Date: 20201215
  Transmission Date: 20210114
  Serious: No
  Sender: FDA-Public Use
  Company Number: US-TEVA-2020-US-1855962

PATIENT
  Age: 56 Year
  Sex: Female

DRUGS (16)
  1. SIMVASTATIN. [Concomitant]
     Active Substance: SIMVASTATIN
     Route: 048
  2. PROMETHAZINE HCL [Concomitant]
     Active Substance: PROMETHAZINE HYDROCHLORIDE
     Route: 048
  3. ACETAMINOPHEN EXTRA STRENGTH [Concomitant]
     Active Substance: ACETAMINOPHEN
     Route: 048
  4. FOLIC ACID. [Concomitant]
     Active Substance: FOLIC ACID
     Route: 048
  5. AUSTEDO [Suspect]
     Active Substance: DEUTETRABENAZINE
     Dosage: 24 MILLIGRAM DAILY;
     Route: 065
     Dates: start: 202011
  6. GABAPENTIN. [Concomitant]
     Active Substance: GABAPENTIN
     Route: 048
  7. HYDROCODONE-ACETAMINOPHEN [Concomitant]
     Active Substance: ACETAMINOPHEN\HYDROCODONE
     Dosage: 10-325 MG
     Route: 048
  8. AUSTEDO [Suspect]
     Active Substance: DEUTETRABENAZINE
     Indication: TARDIVE DYSKINESIA
     Route: 065
     Dates: start: 20201031
  9. ESCITALOPRAM OXALATE. [Concomitant]
     Active Substance: ESCITALOPRAM OXALATE
     Route: 048
  10. KETOROLAC TROMETHAMINE. [Concomitant]
     Active Substance: KETOROLAC TROMETHAMINE
     Route: 048
  11. MULTIVITAMIN WOMEN 50+ [Concomitant]
     Route: 048
  12. BACLOFEN. [Concomitant]
     Active Substance: BACLOFEN
     Route: 048
  13. LAMOTRIGINE. [Concomitant]
     Active Substance: LAMOTRIGINE
     Route: 048
  14. IBUPROFEN. [Concomitant]
     Active Substance: IBUPROFEN
     Route: 048
  15. ONDASETRON [Concomitant]
     Active Substance: ONDANSETRON
     Route: 048
  16. MELATONIN [Concomitant]
     Active Substance: MELATONIN
     Route: 048

REACTIONS (1)
  - Dizziness postural [Recovering/Resolving]
